FAERS Safety Report 7349119-6 (Version None)
Quarter: 2011Q1

REPORT INFORMATION
  Report Type: 
  Country: None (occurrence: None)
  Receive Date: 20110303
  Receipt Date: 20110218
  Transmission Date: 20110831
  Serious: Yes (Congenital Anomaly)
  Sender: FDA-Public Use
  Company Number: 838595

PATIENT
  Sex: Male

DRUGS (2)
  1. (SULPHASALAZINE) [Suspect]
  2. METHOTREXATE [Suspect]

REACTIONS (6)
  - DEVELOPMENTAL DELAY [None]
  - VENTRICULAR SEPTAL DEFECT [None]
  - CRANIOSYNOSTOSIS [None]
  - BODY HEIGHT BELOW NORMAL [None]
  - SMALL FOR DATES BABY [None]
  - DRUG EXPOSURE DURING PREGNANCY [None]
